FAERS Safety Report 4915698-9 (Version None)
Quarter: 2006Q1

REPORT INFORMATION
  Report Type: 
  Country: None (occurrence: None)
  Receive Date: 20060213
  Receipt Date: 20060126
  Transmission Date: 20060701
  Serious: Yes (Other)
  Sender: FDA-Public Use
  Company Number: S06-SAF-00423-01

PATIENT
  Age: 18 Year
  Sex: Female
  Weight: 57.5 kg

DRUGS (2)
  1. CIPRALEX (ESCITALOPRAM) [Suspect]
     Indication: MAJOR DEPRESSION
     Dosage: 5 MG QD PO
     Route: 048
     Dates: start: 20060110, end: 20060111
  2. FERRIMED [Concomitant]

REACTIONS (6)
  - BRONCHOSPASM [None]
  - CHEST DISCOMFORT [None]
  - FACE OEDEMA [None]
  - SKIN REACTION [None]
  - THROAT IRRITATION [None]
  - URTICARIA [None]
